FAERS Safety Report 10247050 (Version 1)
Quarter: 2014Q2

REPORT INFORMATION
  Report Type: Spontaneous
  Country: US (occurrence: None)
  Receive Date: 20140617
  Receipt Date: 20140617
  Transmission Date: 20141212
  Serious: Yes (Hospitalization)
  Sender: FDA-Public Use
  Company Number: None

PATIENT
  Age: 57 Year
  Sex: Female
  Weight: 81 kg

DRUGS (2)
  1. SOFOSBUVIR [Suspect]
     Indication: HEPATITIS C
     Route: 048
     Dates: start: 20140222, end: 20140514
  2. OLYSIO [Suspect]
     Indication: HEPATITIS C
     Route: 048
     Dates: start: 20140222, end: 20140514

REACTIONS (10)
  - Gastrointestinal haemorrhage [None]
  - Haematemesis [None]
  - Gastritis [None]
  - Gastric varices haemorrhage [None]
  - Anaemia [None]
  - Orthostatic hypotension [None]
  - Renal injury [None]
  - Dehydration [None]
  - Upper gastrointestinal haemorrhage [None]
  - Hepatitis C [None]
